FAERS Safety Report 10525417 (Version 1)
Quarter: 2014Q4

REPORT INFORMATION
  Report Type: Spontaneous
  Country: CO (occurrence: None)
  Receive Date: 20141015
  Receipt Date: 20141015
  Transmission Date: 20150528
  Serious: Yes (Other)
  Sender: FDA-Public Use
  Company Number: 2014-20499

PATIENT
  Age: 89 Year
  Sex: Female

DRUGS (1)
  1. EYLEA [Suspect]
     Active Substance: AFLIBERCEPT
     Indication: AGE-RELATED MACULAR DEGENERATION
     Dosage: 3 APPLICATIONS
     Dates: start: 201305, end: 201305

REACTIONS (5)
  - Pain [None]
  - Spinal fracture [None]
  - Accident at home [None]
  - Fall [None]
  - Visual acuity reduced [None]

NARRATIVE: CASE EVENT DATE: 201309
